FAERS Safety Report 14961846 (Version 4)
Quarter: 2018Q4

REPORT INFORMATION
  Report Type: Spontaneous
  Country: JP (occurrence: JP)
  Receive Date: 20180601
  Receipt Date: 20181109
  Transmission Date: 20190204
  Serious: Yes (Hospitalization, Other)
  Sender: FDA-Public Use
  Company Number: JP-ROCHE-2131463

PATIENT
  Age: 60 Year
  Sex: Female
  Weight: 37 kg

DRUGS (2)
  1. PACLITAXEL. [Suspect]
     Active Substance: PACLITAXEL
     Indication: BREAST CANCER
     Dosage: DOSAGE IS UNCERTAIN.
     Route: 041
     Dates: start: 20170112, end: 20170519
  2. AVASTIN [Suspect]
     Active Substance: BEVACIZUMAB
     Indication: BREAST CANCER
     Route: 041
     Dates: start: 20170112, end: 20170606

REACTIONS (6)
  - Pneumonia [Unknown]
  - Pleural effusion [Recovering/Resolving]
  - Decreased appetite [Unknown]
  - Haemoptysis [Recovering/Resolving]
  - Pyrexia [Unknown]
  - Tumour cavitation [Recovering/Resolving]

NARRATIVE: CASE EVENT DATE: 20170529
